FAERS Safety Report 9297942 (Version 3)
Quarter: 2013Q3

REPORT INFORMATION
  Report Type: Spontaneous
  Country: US (occurrence: US)
  Receive Date: 20130520
  Receipt Date: 20130731
  Transmission Date: 20140515
  Serious: Yes (Other)
  Sender: FDA-Public Use
  Company Number: US-JNJFOC-20130503193

PATIENT
  Sex: Female
  Weight: 52.16 kg

DRUGS (3)
  1. LEVAQUIN [Suspect]
     Indication: SINUSITIS
     Dosage: FOR 10 DAYS
     Route: 048
     Dates: start: 2004, end: 2004
  2. PREDNISONE [Suspect]
     Indication: PRODUCT USED FOR UNKNOWN INDICATION
     Route: 065
     Dates: start: 2004
  3. SYNTHROID [Concomitant]
     Indication: THYROID DISORDER
     Route: 065

REACTIONS (13)
  - Dyspnoea [Not Recovered/Not Resolved]
  - Amnesia [Unknown]
  - Ligament rupture [Recovering/Resolving]
  - Meniscus injury [Recovering/Resolving]
  - Arthropathy [Recovering/Resolving]
  - Neuropathy peripheral [Not Recovered/Not Resolved]
  - Confusional state [Unknown]
  - Gait disturbance [Not Recovered/Not Resolved]
  - Balance disorder [Not Recovered/Not Resolved]
  - Plantar fasciitis [Not Recovered/Not Resolved]
  - Dizziness [Unknown]
  - Joint swelling [Unknown]
  - Muscular weakness [Not Recovered/Not Resolved]
